FAERS Safety Report 18217914 (Version 1)
Quarter: 2020Q3

REPORT INFORMATION
  Report Type: Spontaneous
  Country: DE (occurrence: DE)
  Receive Date: 20200901
  Receipt Date: 20200901
  Transmission Date: 20201103
  Serious: Yes (Other)
  Sender: FDA-Public Use
  Company Number: NVSC2020DE239866

PATIENT
  Sex: Male

DRUGS (3)
  1. ISOPTOMAX (ALC) [Suspect]
     Active Substance: DEXAMETHASONE\NEOMYCIN SULFATE\POLYMYXIN B SULFATE
     Indication: OCULAR HYPERAEMIA
     Dosage: UNK (ADMINISTERED TO THE EYE)
     Route: 065
  2. ISOPTOMAX (ALC) [Suspect]
     Active Substance: DEXAMETHASONE\NEOMYCIN SULFATE\POLYMYXIN B SULFATE
     Indication: DRY EYE
  3. ISOPTOMAX (ALC) [Suspect]
     Active Substance: DEXAMETHASONE\NEOMYCIN SULFATE\POLYMYXIN B SULFATE
     Indication: EYE INFLAMMATION

REACTIONS (1)
  - Blindness transient [Unknown]
